FAERS Safety Report 9737027 (Version 1)
Quarter: 2013Q4

REPORT INFORMATION
  Report Type: Spontaneous
  Country: US (occurrence: US)
  Receive Date: 20131206
  Receipt Date: 20131206
  Transmission Date: 20140711
  Serious: No
  Sender: FDA-Public Use
  Company Number: US-GILEAD-2009-0024039

PATIENT
  Age: 92 Year
  Sex: Male

DRUGS (9)
  1. LETAIRIS [Suspect]
     Indication: PULMONARY ARTERIAL HYPERTENSION
     Route: 048
     Dates: start: 20090701
  2. LEVOTHYROXINE [Concomitant]
  3. COLCHICINE [Concomitant]
  4. PREVACID [Concomitant]
  5. NASONEX [Concomitant]
  6. LEVAQUIN [Concomitant]
  7. PREDNISONE [Concomitant]
  8. ADVAIR [Concomitant]
  9. FISH OIL [Concomitant]

REACTIONS (2)
  - Anaemia [Not Recovered/Not Resolved]
  - Oedema peripheral [Not Recovered/Not Resolved]
